FAERS Safety Report 14256791 (Version 2)
Quarter: 2017Q4

REPORT INFORMATION
  Report Type: Spontaneous
  Country: JP (occurrence: JP)
  Receive Date: 20171206
  Receipt Date: 20171220
  Transmission Date: 20180321
  Serious: Yes (Hospitalization)
  Sender: FDA-Public Use
  Company Number: JP-NAPPMUNDI-GBR-2017-0051230

PATIENT
  Sex: Male

DRUGS (1)
  1. NORSPAN [Suspect]
     Active Substance: BUPRENORPHINE
     Indication: SPINAL COLUMN INJURY
     Dosage: 10 MCG, Q1H
     Route: 062
     Dates: end: 20170105

REACTIONS (2)
  - Cerebral infarction [Unknown]
  - Respiratory depression [Unknown]
